FAERS Safety Report 21757130 (Version 2)
Quarter: 2022Q4

REPORT INFORMATION
  Report Type: Spontaneous
  Country: US (occurrence: US)
  Receive Date: 20221220
  Receipt Date: 20221223
  Transmission Date: 20230113
  Serious: No
  Sender: FDA-Public Use
  Company Number: US-SA-SAC20221219000413

PATIENT
  Sex: Female
  Weight: 83.9 kg

DRUGS (1)
  1. DUPIXENT [Suspect]
     Active Substance: DUPILUMAB
     Indication: Dermatitis atopic
     Dosage: 300 MG, QOW
     Route: 058
     Dates: start: 201810

REACTIONS (4)
  - Arthropod bite [Not Recovered/Not Resolved]
  - Skin infection [Unknown]
  - Dry skin [Unknown]
  - Injection site pain [Not Recovered/Not Resolved]
